FAERS Safety Report 7255058-1 (Version None)
Quarter: 2011Q1

REPORT INFORMATION
  Report Type: 
  Country: None (occurrence: None)
  Receive Date: 20110129
  Receipt Date: 20100329
  Transmission Date: 20110831
  Serious: No
  Sender: FDA-Public Use
  Company Number: US-ABBOTT-10P-163-0635381-00

PATIENT
  Sex: Female
  Weight: 52.664 kg

DRUGS (6)
  1. TRAZODONE [Concomitant]
     Indication: POOR QUALITY SLEEP
  2. RELAFEN [Concomitant]
     Indication: SPONDYLOARTHROPATHY
  3. PREDNISONE [Concomitant]
     Indication: SPONDYLOARTHROPATHY
  4. CAPADEX [Concomitant]
     Indication: IMPAIRED GASTRIC EMPTYING
  5. HUMIRA [Suspect]
     Dosage: PEN
     Dates: start: 20100301
  6. HUMIRA [Suspect]
     Indication: SPONDYLOARTHROPATHY
     Dates: start: 20091101, end: 20100301

REACTIONS (4)
  - ABDOMINAL PAIN [None]
  - INJECTION SITE PAIN [None]
  - NAUSEA [None]
  - INJECTION SITE HAEMATOMA [None]
